FAERS Safety Report 21961715 (Version 1)
Quarter: 2023Q1

REPORT INFORMATION
  Report Type: Spontaneous
  Country: US (occurrence: None)
  Receive Date: 20230204
  Receipt Date: 20230204
  Transmission Date: 20230418
  Serious: Yes (Life-Threatening, Hospitalization)
  Sender: FDA-Public Use
  Company Number: None

PATIENT
  Age: 27 Year
  Sex: Male
  Weight: 121 kg

DRUGS (3)
  1. DIETARY SUPPLEMENT [Suspect]
     Active Substance: DIETARY SUPPLEMENT
     Indication: Cushing^s syndrome
     Dosage: FREQUENCY : TWICE A DAY;?
     Route: 048
  2. DIETARY SUPPLEMENT [Suspect]
     Active Substance: DIETARY SUPPLEMENT
     Indication: Adrenal insufficiency
  3. DEXAMETHASONE [Suspect]
     Active Substance: DEXAMETHASONE

REACTIONS (6)
  - Cellulitis [None]
  - Necrotising fasciitis [None]
  - Cushing^s syndrome [None]
  - Infection [None]
  - Immunosuppression [None]
  - Adrenal insufficiency [None]

NARRATIVE: CASE EVENT DATE: 20230116
